FAERS Safety Report 4672895-8 (Version None)
Quarter: 2005Q2

REPORT INFORMATION
  Report Type: 
  Country: None (occurrence: None)
  Receive Date: 20050523
  Receipt Date: 20050509
  Transmission Date: 20051028
  Serious: Yes (Other)
  Sender: FDA-Public Use
  Company Number: US-2005-007656

PATIENT
  Age: 57 Year
  Sex: Female

DRUGS (4)
  1. MAGNEVIST [Suspect]
     Indication: NUCLEAR MAGNETIC RESONANCE IMAGING BRAIN
     Dosage: TOTAL DOSE APPROX. 60-80 ML
  2. THIAMINE [Concomitant]
  3. MULTIVITAMINS (PATHENOL, RETINOL) [Concomitant]
  4. ANTIHYPERTENSIVES [Concomitant]

REACTIONS (9)
  - APATHY [None]
  - BLOOD CREATININE INCREASED [None]
  - BLOOD PRESSURE FLUCTUATION [None]
  - CONSCIOUSNESS FLUCTUATING [None]
  - LACUNAR INFARCTION [None]
  - MENTAL STATUS CHANGES [None]
  - NUCLEAR MAGNETIC RESONANCE IMAGING BRAIN ABNORMAL [None]
  - RETROGRADE AMNESIA [None]
  - TOXIC INDUCED ENCEPHALOPATHY [None]
